FAERS Safety Report 5558144-7 (Version None)
Quarter: 2007Q4

REPORT INFORMATION
  Report Type: 
  Country: None (occurrence: None)
  Receive Date: 20071214
  Receipt Date: 20071203
  Transmission Date: 20080405
  Serious: Yes (Other)
  Sender: FDA-Public Use
  Company Number: US-PFIZER INC-2007076534

PATIENT
  Sex: Female
  Weight: 66.2 kg

DRUGS (1)
  1. OXAPROZIN CAPLET [Suspect]
     Indication: MORTON'S NEUROMA
     Dates: start: 20070801, end: 20070808

REACTIONS (4)
  - ERYTHEMA [None]
  - HYPERSENSITIVITY [None]
  - LIP SWELLING [None]
  - SWOLLEN TONGUE [None]
